FAERS Safety Report 6262761-9 (Version None)
Quarter: 2009Q3

REPORT INFORMATION
  Report Type: 
  Country: None (occurrence: None)
  Receive Date: 20090709
  Receipt Date: 20090702
  Transmission Date: 20100115
  Serious: Yes (Death, Other)
  Sender: FDA-Public Use
  Company Number: GB-AMGEN-US354444

PATIENT
  Age: 66 Year
  Sex: Male

DRUGS (7)
  1. ENBREL [Suspect]
     Indication: PSORIASIS
     Route: 058
     Dates: start: 20060701, end: 20081101
  2. BENDROFLUAZIDE [Concomitant]
     Dosage: UNKNOWN
     Route: 065
  3. NIFEDIPINE [Concomitant]
     Dosage: UNKNOWN
     Route: 065
  4. METFORMIN HCL [Concomitant]
     Dosage: UNKNOWN
     Route: 065
  5. METHOTREXATE [Concomitant]
     Indication: PSORIASIS
     Route: 048
     Dates: start: 19970101, end: 20080101
  6. ASPIRIN [Concomitant]
     Dosage: UNKNOWN
     Route: 065
  7. CYCLOSPORINE [Concomitant]
     Indication: PSORIASIS
     Route: 048
     Dates: start: 19990301, end: 20080101

REACTIONS (2)
  - HYPERTENSIVE HEART DISEASE [None]
  - UNDERDOSE [None]
